FAERS Safety Report 23315857 (Version 2)
Quarter: 2024Q1

REPORT INFORMATION
  Report Type: Report from Study
  Country: CN (occurrence: CN)
  Receive Date: 20231219
  Receipt Date: 20240117
  Transmission Date: 20240410
  Serious: No
  Sender: FDA-Public Use
  Company Number: CN-PFIZER INC-PV202300202944

PATIENT
  Age: 69 Year
  Sex: Male
  Weight: 70 kg

DRUGS (33)
  1. NIRMATRELVIR\RITONAVIR [Suspect]
     Active Substance: NIRMATRELVIR\RITONAVIR
     Indication: COVID-19
     Dosage: [NIRMATRELVIR 300 MG]/ [RITONAVIR 100 MG], 2X/DAY
     Route: 048
     Dates: start: 20220421, end: 20220426
  2. NIRMATRELVIR\RITONAVIR [Suspect]
     Active Substance: NIRMATRELVIR\RITONAVIR
     Dosage: [NIRMATRELVIR 300 MG]/ [RITONAVIR 100 MG], 2X/DAY
     Route: 048
     Dates: start: 20220504, end: 20220509
  3. QUETIAPINE FUMARATE [Concomitant]
     Active Substance: QUETIAPINE FUMARATE
     Indication: Dementia
     Dosage: UNK
     Route: 048
     Dates: start: 20220419, end: 20220512
  4. RISPERIDONE [Concomitant]
     Active Substance: RISPERIDONE
     Dosage: UNK
     Route: 048
     Dates: start: 20220419, end: 20220512
  5. GRANULOCYTE COLONY-STIMULATING FACTOR NOS [Concomitant]
     Active Substance: GRANULOCYTE COLONY-STIMULATING FACTOR NOS
     Indication: Leukocytosis
     Dosage: UNK
     Route: 042
     Dates: start: 20220419, end: 20220419
  6. GRANULOCYTE COLONY-STIMULATING FACTOR NOS [Concomitant]
     Active Substance: GRANULOCYTE COLONY-STIMULATING FACTOR NOS
     Dosage: UNK
     Route: 042
     Dates: start: 20220421, end: 20220421
  7. ATORVASTATIN CALCIUM [Concomitant]
     Active Substance: ATORVASTATIN CALCIUM
     Dosage: UNK
     Route: 048
     Dates: start: 20220419, end: 20220512
  8. METOPROLOL SUCCINATE [Concomitant]
     Active Substance: METOPROLOL SUCCINATE
     Indication: Heart rate increased
     Dosage: SUSTAINED-RELEASE TABLETS
     Route: 048
     Dates: start: 20220419, end: 20220512
  9. METOPROLOL SUCCINATE [Concomitant]
     Active Substance: METOPROLOL SUCCINATE
     Dosage: SUSTAINED-RELEASE TABLETS
     Route: 048
     Dates: start: 20220510, end: 20220510
  10. LEUCOGEN [Concomitant]
     Active Substance: LEUCOGEN
     Indication: Leukocytosis
     Dosage: UNK
     Route: 048
     Dates: start: 20220419, end: 20220422
  11. CEFEPIME HYDROCHLORIDE [Concomitant]
     Active Substance: CEFEPIME HYDROCHLORIDE
     Indication: Infection
     Dosage: UNK
     Route: 042
     Dates: start: 20220419, end: 20220419
  12. CEFEPIME HYDROCHLORIDE [Concomitant]
     Active Substance: CEFEPIME HYDROCHLORIDE
     Dosage: UNK
     Route: 048
     Dates: start: 20220419, end: 20220421
  13. LEVOFLOXACIN [Concomitant]
     Active Substance: LEVOFLOXACIN
     Indication: Infection
     Dosage: UNK
     Route: 042
     Dates: start: 20220419, end: 20220502
  14. POTASSIUM CHLORIDE [Concomitant]
     Active Substance: POTASSIUM CHLORIDE
     Indication: Mineral supplementation
     Dosage: UNK
     Route: 042
     Dates: start: 20220421, end: 20220423
  15. POTASSIUM CHLORIDE [Concomitant]
     Active Substance: POTASSIUM CHLORIDE
     Dosage: UNK
     Route: 042
     Dates: start: 20220511, end: 20220512
  16. POTASSIUM CHLORIDE [Concomitant]
     Active Substance: POTASSIUM CHLORIDE
     Dosage: UNK
     Route: 048
     Dates: start: 20220421, end: 20220506
  17. POTASSIUM CHLORIDE [Concomitant]
     Active Substance: POTASSIUM CHLORIDE
     Dosage: UNK
     Route: 048
     Dates: start: 20220511, end: 20220512
  18. MEROPENEM [Concomitant]
     Active Substance: MEROPENEM
     Indication: Infection
     Dosage: UNK
     Route: 042
     Dates: start: 20220421, end: 20220428
  19. HEPARIN SODIUM [Concomitant]
     Active Substance: HEPARIN SODIUM
     Indication: Anticoagulant therapy
     Dosage: UNK
     Route: 058
     Dates: start: 20220422, end: 20220504
  20. MAGNESIUM ISOGLYCYRRHIZINATE [Concomitant]
     Active Substance: MAGNESIUM ISOGLYCYRRHIZINATE
     Indication: Prophylaxis
     Dosage: UNK
     Route: 042
     Dates: start: 20220422, end: 20220427
  21. PHOSPHOLIPID [Concomitant]
     Active Substance: PHOSPHOLIPID
     Indication: Prophylaxis
     Dosage: UNK
     Route: 048
     Dates: start: 20220427, end: 20220512
  22. PIPERACILLIN AND TAZOBACTAM [Concomitant]
     Active Substance: PIPERACILLIN SODIUM\TAZOBACTAM SODIUM
     Indication: Infection
     Dosage: UNK
     Route: 042
     Dates: start: 20220428, end: 20220506
  23. ENOXAPARIN SODIUM [Concomitant]
     Active Substance: ENOXAPARIN SODIUM
     Indication: Anticoagulant therapy
     Dosage: UNK
     Route: 058
     Dates: start: 20220504, end: 20220512
  24. SODIUM CHLORIDE [Concomitant]
     Active Substance: SODIUM CHLORIDE
     Indication: Mineral supplementation
     Dosage: UNK
     Route: 045
     Dates: start: 20220510, end: 20220512
  25. AMINO ACIDS, SOURCE UNSPECIFIED [Concomitant]
     Active Substance: AMINO ACIDS, SOURCE UNSPECIFIED
     Indication: Nutritional supplementation
     Dosage: UNK
     Route: 042
     Dates: start: 20220511, end: 20220512
  26. CEFOPERAZONE SODIUM\SULBACTAM SODIUM [Concomitant]
     Active Substance: CEFOPERAZONE SODIUM\SULBACTAM SODIUM
     Indication: Infection
     Dosage: UNK
     Route: 042
     Dates: start: 20220511, end: 20220512
  27. HERBALS\MENTHOL [Concomitant]
     Active Substance: HERBALS\MENTHOL
     Indication: Antiviral treatment
     Dosage: UNK
     Route: 048
     Dates: start: 20220419, end: 20220419
  28. HERBALS\MENTHOL [Concomitant]
     Active Substance: HERBALS\MENTHOL
     Dosage: UNK
     Route: 048
     Dates: start: 20220424, end: 20220424
  29. COMPOUND AMIONPRINE AND ANTIPYRINE [Concomitant]
     Indication: Pyrexia
     Dosage: UNK
     Route: 030
     Dates: start: 20220511, end: 20220511
  30. ASTER TATARICUS/CITRUS AURANTIUM FRUIT PEEL/GLYCYRRHIZA SPP. ROOT WITH [Concomitant]
     Indication: Cough
     Dosage: XUAN FEI ZHI SOU
     Route: 048
     Dates: start: 20220424, end: 20220424
  31. KANG FU XIN [Concomitant]
     Indication: Mucosal disorder
     Dosage: KANG FU XIN YE
     Route: 048
     Dates: start: 20220425, end: 20220425
  32. GLYCERIN;PURIFIED WATER [Concomitant]
     Indication: Gastrointestinal disorder
     Dosage: UNK
     Route: 054
     Dates: start: 20220503, end: 20220503
  33. CALCIUM CHLORIDE\POTASSIUM CHLORIDE\SODIUM CHLORIDE\SODIUM LACTATE [Concomitant]
     Active Substance: CALCIUM CHLORIDE\POTASSIUM CHLORIDE\SODIUM CHLORIDE\SODIUM LACTATE
     Indication: Nutritional supplementation
     Dosage: UNK
     Route: 042
     Dates: start: 20220510, end: 20220510

REACTIONS (1)
  - Overdose [Unknown]
